FAERS Safety Report 23972215 (Version 4)
Quarter: 2025Q1

REPORT INFORMATION
  Report Type: Spontaneous
  Country: US (occurrence: US)
  Receive Date: 20240613
  Receipt Date: 20250306
  Transmission Date: 20250409
  Serious: Yes (Other)
  Sender: PFIZER
  Company Number: US-PFIZER INC-202400190635

PATIENT
  Age: 59 Year
  Sex: Female
  Weight: 64.41 kg

DRUGS (6)
  1. TUKYSA [Suspect]
     Active Substance: TUCATINIB
     Indication: Breast cancer metastatic
     Dosage: 200 MILLIGRAMS TWICE DAILY
     Route: 048
     Dates: start: 20240424, end: 2024
  2. TUKYSA [Suspect]
     Active Substance: TUCATINIB
     Dosage: ONE TABLET A 150 MILLIGRAMS IN THE MORNING AND 300 AT NIGHT
     Route: 048
     Dates: start: 2024, end: 2024
  3. TUKYSA [Suspect]
     Active Substance: TUCATINIB
     Dosage: 150MG, 1 TABLET TWICE A DAY
     Route: 048
     Dates: start: 2024
  4. TUKYSA [Suspect]
     Active Substance: TUCATINIB
     Dosage: 150 MG 1 TIME A DAY
  5. CAPECITABINE [Concomitant]
     Active Substance: CAPECITABINE
     Indication: Breast cancer female
     Dosage: 500 MILLIGRAMS, TWICE DAILY
  6. CAPECITABINE [Concomitant]
     Active Substance: CAPECITABINE
     Dosage: 1000 MILLIGRAMS, TWICE DAILY

REACTIONS (5)
  - Hepatotoxicity [Unknown]
  - Breast cancer metastatic [Unknown]
  - Malignant neoplasm progression [Unknown]
  - Memory impairment [Unknown]
  - Off label use [Unknown]

NARRATIVE: CASE EVENT DATE: 20240101
